FAERS Safety Report 6579644-7 (Version None)
Quarter: 2010Q1

REPORT INFORMATION
  Report Type: 
  Country: None (occurrence: None)
  Receive Date: 20100203
  Receipt Date: 20100118
  Transmission Date: 20100710
  Serious: Yes (Death)
  Sender: FDA-Public Use
  Company Number: B0627884A

PATIENT
  Age: 16 Year
  Sex: Female

DRUGS (2)
  1. QUETIAPINE [Suspect]
     Dosage: ORAL
     Route: 048
  2. LAMOTRIGINE [Suspect]
     Dosage: ORAL
     Route: 048

REACTIONS (2)
  - COMPLETED SUICIDE [None]
  - MEDICATION ERROR [None]
